FAERS Safety Report 24980692 (Version 2)
Quarter: 2025Q1

REPORT INFORMATION
  Report Type: Report from Study
  Country: IT (occurrence: IT)
  Receive Date: 20250218
  Receipt Date: 20250228
  Transmission Date: 20250409
  Serious: Yes (Death, Hospitalization, Other)
  Sender: ABBVIE
  Company Number: IT-JNJFOC-20250188159

PATIENT
  Age: 62 Year
  Sex: Female
  Weight: 70 kg

DRUGS (4)
  1. IBRUTINIB [Suspect]
     Active Substance: IBRUTINIB
     Indication: Mantle cell lymphoma
     Dosage: THERAPY END DATE: 29-NOV-2024
     Route: 048
     Dates: start: 20241109, end: 20241129
  2. IBRUTINIB [Suspect]
     Active Substance: IBRUTINIB
     Indication: Mantle cell lymphoma
     Route: 048
     Dates: start: 20241129, end: 20241215
  3. IBRUTINIB [Suspect]
     Active Substance: IBRUTINIB
     Indication: Mantle cell lymphoma
     Route: 048
     Dates: start: 20241220, end: 20241229
  4. IBRUTINIB [Suspect]
     Active Substance: IBRUTINIB
     Indication: Mantle cell lymphoma
     Route: 048
     Dates: start: 20241108, end: 20250120

REACTIONS (9)
  - Disease progression [Fatal]
  - Haemorrhoids [Recovered/Resolved]
  - Pyrexia [Recovered/Resolved]
  - Pulse abnormal [Recovered/Resolved]
  - Abdominal pain [Fatal]
  - Ecchymosis [Recovered/Resolved]
  - Chest pain [Recovered/Resolved]
  - Neutropenia [Recovered/Resolved]
  - Bone pain [Recovered/Resolved]

NARRATIVE: CASE EVENT DATE: 20241110
